FAERS Safety Report 4619087-6 (Version None)
Quarter: 2005Q2

REPORT INFORMATION
  Report Type: 
  Country: None (occurrence: None)
  Receive Date: 20050321
  Receipt Date: 20041214
  Transmission Date: 20051028
  Serious: Yes (Other)
  Sender: FDA-Public Use
  Company Number: 2004-12-0755

PATIENT
  Age: 38 Year
  Sex: Female
  Weight: 53.0709 kg

DRUGS (7)
  1. PEG-INTRON [Suspect]
     Indication: HEPATITIS C
     Dosage: SEE IMAGE
     Route: 058
     Dates: start: 20040513, end: 20041003
  2. PEG-INTRON [Suspect]
     Indication: HEPATITIS C
     Dosage: SEE IMAGE
     Route: 058
     Dates: start: 20041004, end: 20041101
  3. PEG-INTRON [Suspect]
     Indication: HEPATITIS C
     Dosage: SEE IMAGE
     Route: 058
     Dates: start: 20041102, end: 20041201
  4. PEG-INTRON [Suspect]
     Indication: HEPATITIS C
     Dosage: SEE IMAGE
     Route: 058
     Dates: start: 20050101
  5. RIBAVIRIN [Suspect]
     Indication: HEPATITIS C
     Dosage: 800 MG QD ORAL;  UNK QD ORAL
     Route: 048
     Dates: start: 20040513, end: 20041201
  6. RIBAVIRIN [Suspect]
     Indication: HEPATITIS C
     Dosage: 800 MG QD ORAL;  UNK QD ORAL
     Route: 048
     Dates: start: 20050101
  7. ZOLOFT [Concomitant]

REACTIONS (4)
  - HYPOTHYROIDISM [None]
  - NEUTROPENIA [None]
  - NIGHT SWEATS [None]
  - THYROIDITIS [None]
